FAERS Safety Report 9330126 (Version 2)
Quarter: 2013Q4

REPORT INFORMATION
  Report Type: Spontaneous
  Country: US (occurrence: US)
  Receive Date: 20130604
  Receipt Date: 20131119
  Transmission Date: 20140711
  Serious: Yes (Other)
  Sender: FDA-Public Use
  Company Number: US-B.I. PHARMACEUTICALS,INC./RIDGEFIELD-2013-BI-15452BP

PATIENT
  Age: 54 Year
  Sex: Male
  Weight: 113.4 kg

DRUGS (13)
  1. PRADAXA [Suspect]
     Indication: ANTICOAGULANT THERAPY
     Dates: start: 20111017, end: 20111019
  2. PRADAXA [Suspect]
     Indication: ATRIAL FIBRILLATION
  3. LOVENOX [Concomitant]
     Indication: ATRIAL FIBRILLATION
  4. ASPIRIN [Concomitant]
     Indication: ATRIAL FIBRILLATION
  5. SINGULAIR [Concomitant]
  6. CYMBALTA [Concomitant]
  7. ROPINIROLE [Concomitant]
  8. CELEBREX [Concomitant]
  9. ALRUORICIAL [Concomitant]
  10. TRAZODONE [Concomitant]
  11. TESTOSTERONE [Concomitant]
  12. LIPITOR [Concomitant]
  13. BHEA [Concomitant]

REACTIONS (4)
  - Intra-abdominal haematoma [Unknown]
  - Haemorrhagic anaemia [Unknown]
  - Renal failure acute [Recovered/Resolved]
  - Acute respiratory failure [Recovered/Resolved]
